FAERS Safety Report 6893655-3 (Version None)
Quarter: 2010Q3

REPORT INFORMATION
  Report Type: 
  Country: None (occurrence: None)
  Receive Date: 20100731
  Receipt Date: 20091124
  Transmission Date: 20110219
  Serious: No
  Sender: FDA-Public Use
  Company Number: US-PFIZER INC-2009268972

PATIENT
  Age: 73 Year
  Sex: Male

DRUGS (6)
  1. LIPITOR [Suspect]
  2. ALFUZOSIN [Interacting]
     Indication: PROSTATIC DISORDER
     Dosage: 10 MG, 1X/DAY
     Route: 048
     Dates: start: 20090826
  3. ALFUZOSIN [Interacting]
     Indication: POLLAKIURIA
  4. COENZYME Q10 [Interacting]
  5. METOPROLOL [Concomitant]
  6. ALISKIREN [Concomitant]

REACTIONS (5)
  - DRUG INTERACTION [None]
  - FEELING OF BODY TEMPERATURE CHANGE [None]
  - MUSCULAR WEAKNESS [None]
  - PAIN IN EXTREMITY [None]
  - RESTLESSNESS [None]
